FAERS Safety Report 14967468 (Version 4)
Quarter: 2018Q3

REPORT INFORMATION
  Report Type: Spontaneous
  Country: ES (occurrence: ES)
  Receive Date: 20180604
  Receipt Date: 20180906
  Transmission Date: 20181010
  Serious: Yes (Other)
  Sender: FDA-Public Use
  Company Number: ES-SUN PHARMACEUTICAL INDUSTRIES LTD-2018RR-174627

PATIENT
  Age: 50 Year
  Sex: Female

DRUGS (2)
  1. TEMOZOLOMIDE. [Suspect]
     Active Substance: TEMOZOLOMIDE
     Indication: ANAPLASTIC OLIGODENDROGLIOMA
     Dosage: TMZ FOR 2 YEARS ()
     Route: 048
  2. TEMOZOLOMIDE. [Suspect]
     Active Substance: TEMOZOLOMIDE
     Dosage: 6 CYCLES AT A DOSE OF 200 MG/M2/D FOR 5 CONSECUTIVE DAYS IN EACH 28 DAY CYCLE; 30 DAYS OF TREATMENT
     Route: 048

REACTIONS (1)
  - Tumour pseudoprogression [Unknown]
